FAERS Safety Report 23771782 (Version 2)
Quarter: 2024Q2

REPORT INFORMATION
  Report Type: Report from Study
  Country: KR (occurrence: KR)
  Receive Date: 20240423
  Receipt Date: 20240521
  Transmission Date: 20240716
  Serious: Yes (Other)
  Sender: FDA-Public Use
  Company Number: KR-002147023-NVSC2023KR059121

PATIENT
  Age: 66 Year
  Sex: Male
  Weight: 64 kg

DRUGS (16)
  1. BEOVU [Suspect]
     Active Substance: BROLUCIZUMAB-DBLL
     Indication: Neovascular age-related macular degeneration
     Dosage: 6 MG, Q3MO (EVERY 12 WEEKS)
     Route: 031
     Dates: start: 20220617, end: 20220617
  2. BEOVU [Suspect]
     Active Substance: BROLUCIZUMAB-DBLL
     Dosage: 6 MG, Q3MO (EVERY 12 WEEKS)
     Route: 031
     Dates: start: 20220914, end: 20220914
  3. MOROXACIN [Concomitant]
     Indication: Evidence based treatment
     Dosage: 1 DRP, 6
     Route: 047
     Dates: start: 20220617, end: 20220622
  4. MOROXACIN [Concomitant]
     Indication: Prophylaxis
     Dosage: 1 DRP, 6
     Route: 047
     Dates: start: 20220914, end: 20220920
  5. MOROXACIN [Concomitant]
     Dosage: 5 ML, 0.5 %
     Route: 065
     Dates: start: 20220926
  6. EFFEXIN [Concomitant]
     Indication: Evidence based treatment
     Dosage: 1 DRP, 1
     Route: 047
     Dates: start: 20220617, end: 20220617
  7. EFFEXIN [Concomitant]
     Dosage: 1 DRP, 1
     Route: 047
     Dates: start: 20220914, end: 20220914
  8. PARACAINE [Concomitant]
     Active Substance: PROPARACAINE HYDROCHLORIDE
     Indication: Evidence based treatment
     Dosage: 1 DRP, 1 (EYE DROP)
     Route: 047
     Dates: start: 20220617, end: 20220617
  9. PARACAINE [Concomitant]
     Active Substance: PROPARACAINE HYDROCHLORIDE
     Dosage: 1 DRP, 1 (EYE DROP)
     Route: 047
     Dates: start: 20220914, end: 20220914
  10. TROPHERINE [Concomitant]
     Indication: Evidence based treatment
     Dosage: 1 DRP, 1 (EYE DROP)
     Route: 047
     Dates: start: 20220617, end: 20220617
  11. TROPHERINE [Concomitant]
     Dosage: 1 DRP, 1 (EYE DROP)
     Route: 047
     Dates: start: 20220914, end: 20220914
  12. HYALU [Concomitant]
     Indication: Evidence based treatment
     Dosage: 1 DRP, 6 (EYE DROP) (0.5 ML)
     Route: 047
     Dates: start: 20220617, end: 20220627
  13. HYALU [Concomitant]
     Dosage: 1 DRP, 6 (EYE DROP) (0.5 ML)
     Route: 047
     Dates: start: 20220914, end: 20220924
  14. RADOVA [Concomitant]
     Indication: Hypertension
     Dosage: UNK (NON OCULAR)
     Route: 065
     Dates: start: 202106
  15. TEPRENONE [Concomitant]
     Active Substance: TEPRENONE
     Indication: Gastrointestinal disorder prophylaxis
     Dosage: UNK
     Route: 065
     Dates: start: 20220926
  16. LEVOFLOXACIN [Concomitant]
     Active Substance: LEVOFLOXACIN
     Indication: Prophylaxis
     Dosage: UNK (OPHTHALMIC SOLUTION)
     Route: 065
     Dates: start: 20221212

REACTIONS (2)
  - Anterior chamber inflammation [Recovered/Resolved]
  - Keratic precipitates [Recovered/Resolved]

NARRATIVE: CASE EVENT DATE: 20220914
